FAERS Safety Report 4415339-3 (Version None)
Quarter: 2004Q3

REPORT INFORMATION
  Report Type: 
  Country: None (occurrence: None)
  Receive Date: 20040730
  Receipt Date: 20040720
  Transmission Date: 20050211
  Serious: Yes (Hospitalization)
  Sender: FDA-Public Use
  Company Number: HQWYE292621JUL04

PATIENT
  Age: 28 Year
  Sex: Female

DRUGS (1)
  1. OVRAL-28 [Suspect]
     Indication: CONTRACEPTION
     Dosage: 1 TABLET DAILY, ORAL
     Route: 048
     Dates: start: 19730901, end: 19740601

REACTIONS (2)
  - CELLULITIS [None]
  - THROMBOPHLEBITIS [None]
